FAERS Safety Report 14259481 (Version 1)
Quarter: 2017Q4

REPORT INFORMATION
  Report Type: Spontaneous
  Country: PT (occurrence: PT)
  Receive Date: 20171207
  Receipt Date: 20171207
  Transmission Date: 20180321
  Serious: Yes (Death, Other)
  Sender: FDA-Public Use
  Company Number: PT-FRESENIUS KABI-FK201710470

PATIENT
  Age: 97 Year
  Sex: Female

DRUGS (3)
  1. FUSIDIC ACID [Concomitant]
     Active Substance: FUSIDIC ACID
     Indication: HERPES VIRUS INFECTION
     Route: 065
     Dates: start: 20170315
  2. ACICLOVIR (MANUFACTURER UNKNOWN) [Suspect]
     Active Substance: ACYCLOVIR
     Indication: HERPES VIRUS INFECTION
     Route: 065
     Dates: start: 20170315, end: 20170317
  3. CANDESARTAN + HIDROCLOROTIAZIDA [Concomitant]
     Active Substance: CANDESARTAN CILEXETIL\HYDROCHLOROTHIAZIDE
     Indication: HYPERTENSION
     Route: 048

REACTIONS (3)
  - Acute kidney injury [Unknown]
  - Blood creatinine increased [Unknown]
  - Blood urea increased [Unknown]

NARRATIVE: CASE EVENT DATE: 20170317
